FAERS Safety Report 7611684-9 (Version None)
Quarter: 2011Q3

REPORT INFORMATION
  Report Type: 
  Country: None (occurrence: None)
  Receive Date: 20110715
  Receipt Date: 20110713
  Transmission Date: 20111222
  Serious: Yes (Other)
  Sender: FDA-Public Use
  Company Number: GR-MERCK-1107GRC00003

PATIENT
  Age: 74 Year
  Sex: Female
  Weight: 78 kg

DRUGS (2)
  1. TIMOLOL MALEATE AND TRAVOPROST [Concomitant]
     Indication: GLAUCOMA
     Route: 047
  2. TRUSOPT [Suspect]
     Indication: GLAUCOMA
     Route: 047
     Dates: start: 20110215, end: 20110216

REACTIONS (7)
  - EYE SWELLING [None]
  - PRURITUS [None]
  - VISION BLURRED [None]
  - LACRIMATION INCREASED [None]
  - BURNING SENSATION [None]
  - EYE IRRITATION [None]
  - INFLAMMATION [None]
